FAERS Safety Report 23009778 (Version 2)
Quarter: 2023Q4

REPORT INFORMATION
  Report Type: Spontaneous
  Country: US (occurrence: US)
  Receive Date: 20230929
  Receipt Date: 20231027
  Transmission Date: 20240110
  Serious: Yes (Hospitalization, Other)
  Sender: FDA-Public Use
  Company Number: US-AMERICAN REGENT INC-2023002282

PATIENT
  Sex: Male

DRUGS (3)
  1. VENOFER [Suspect]
     Active Substance: IRON SUCROSE
     Indication: Blood iron decreased
     Dosage: 300 MILLIGRAM, SINGLE
     Route: 042
     Dates: start: 20230814, end: 20230814
  2. VENOFER [Suspect]
     Active Substance: IRON SUCROSE
     Indication: Red blood cell count decreased
     Dosage: 300 MILLIGRAM, SINGLE
     Route: 042
     Dates: start: 20230821, end: 20230821
  3. VENOFER [Suspect]
     Active Substance: IRON SUCROSE
     Dosage: 300 MILLIGRAM, SINGLE
     Route: 042
     Dates: start: 20230828, end: 20230828

REACTIONS (14)
  - Iron overload [Recovered/Resolved]
  - Balance disorder [Recovering/Resolving]
  - Blood iron decreased [Not Recovered/Not Resolved]
  - Blood sodium decreased [Unknown]
  - Gait disturbance [Recovering/Resolving]
  - Chills [Recovering/Resolving]
  - Tremor [Recovering/Resolving]
  - Loss of consciousness [Recovered/Resolved]
  - Feeling abnormal [Recovering/Resolving]
  - Pruritus [Recovering/Resolving]
  - Asthenia [Recovering/Resolving]
  - Dizziness [Recovering/Resolving]
  - Blood pressure increased [Recovered/Resolved]
  - Inappropriate schedule of product administration [Unknown]

NARRATIVE: CASE EVENT DATE: 20230101
